FAERS Safety Report 8667720 (Version 4)
Quarter: 2012Q4

REPORT INFORMATION
  Report Type: 
  Country: BR (occurrence: BR)
  Receive Date: 20120717
  Receipt Date: 20120831
  Transmission Date: 20130627
  Serious: Yes (Hospitalization, Other)
  Sender: FDA-Public Use
  Company Number: BR-PFIZER INC-2012167566

PATIENT
  Age: 66 Year
  Sex: Female

DRUGS (5)
  1. NORVASC [Suspect]
     Indication: HYPERTENSION
     Dosage: 5 mg, 1x/day
     Route: 048
     Dates: start: 20110330
  2. OLMETEC HCT [Suspect]
     Indication: HYPERTENSION
     Dosage: 20/12.5 mg once daily
     Route: 048
     Dates: start: 20110330
  3. ANGIPRESS [Concomitant]
     Indication: HYPERTENSION
     Dosage: 25 mg, 2x/day
  4. RIVOTRIL [Concomitant]
     Indication: ANXIETY
     Dosage: 2 mg, 1x/day (at night)
  5. OROXADIN [Concomitant]
     Indication: BLOOD CHOLESTEROL ABNORMAL
     Dosage: 1 DF, 1x/day

REACTIONS (3)
  - Renal cancer [Unknown]
  - Hypertension [Unknown]
  - Abdominal pain upper [Unknown]
